FAERS Safety Report 9739119 (Version 2)
Quarter: 2013Q4

REPORT INFORMATION
  Report Type: Report from Study
  Country: GB (occurrence: GB)
  Receive Date: 20131209
  Receipt Date: 20131213
  Transmission Date: 20140711
  Serious: Yes (Hospitalization)
  Sender: FDA-Public Use
  Company Number: GB-EISAI INC-E7389-04481-SOL-GB

PATIENT
  Age: 51 Year
  Sex: Female
  Weight: 94 kg

DRUGS (1)
  1. HALAVEN [Suspect]
     Indication: BREAST CANCER METASTATIC
     Route: 041
     Dates: start: 20131121

REACTIONS (1)
  - Neutropenic sepsis [Recovering/Resolving]
